FAERS Safety Report 18147084 (Version 1)
Quarter: 2020Q3

REPORT INFORMATION
  Report Type: Spontaneous
  Country: US (occurrence: US)
  Receive Date: 20200813
  Receipt Date: 20200813
  Transmission Date: 20201103
  Serious: Yes (Other)
  Sender: FDA-Public Use
  Company Number: US-ALEXION-A202011638

PATIENT
  Sex: Female

DRUGS (1)
  1. SOLIRIS [Suspect]
     Active Substance: ECULIZUMAB
     Indication: MYASTHENIA GRAVIS
     Dosage: UNK
     Route: 065

REACTIONS (7)
  - Diaphragm muscle weakness [Unknown]
  - Carbon dioxide increased [Unknown]
  - Muscle fatigue [Unknown]
  - Acquired mitochondrial DNA mutation [Unknown]
  - Pain [Unknown]
  - Dyspnoea [Unknown]
  - Procedural pain [Unknown]
